FAERS Safety Report 8003282-2 (Version None)
Quarter: 2011Q4

REPORT INFORMATION
  Report Type: 
  Country: None (occurrence: None)
  Receive Date: 20111222
  Receipt Date: 20111219
  Transmission Date: 20120403
  Serious: Yes (Other)
  Sender: FDA-Public Use
  Company Number: PHHY2011CA102423

PATIENT
  Sex: Female
  Weight: 45 kg

DRUGS (6)
  1. MIACALCIN [Concomitant]
     Dosage: 200 U, UNK
     Dates: start: 20091205
  2. ZOLEDRONOC ACID [Suspect]
     Indication: OSTEOPOROSIS
     Route: 042
     Dates: start: 20090305
  3. ZOLEDRONOC ACID [Suspect]
     Route: 042
     Dates: start: 20110216
  4. ZOLEDRONOC ACID [Suspect]
     Route: 042
     Dates: start: 20100219
  5. CALCIUM [Concomitant]
     Dates: start: 20000101
  6. VITAMIN D [Concomitant]
     Dates: start: 20000101

REACTIONS (2)
  - CREATININE RENAL CLEARANCE DECREASED [None]
  - RENAL FAILURE CHRONIC [None]
